FAERS Safety Report 7793160-6 (Version None)
Quarter: 2011Q4

REPORT INFORMATION
  Report Type: 
  Country: None (occurrence: None)
  Receive Date: 20111003
  Receipt Date: 20110928
  Transmission Date: 20120403
  Serious: Yes (Death, Other)
  Sender: FDA-Public Use
  Company Number: US-PFIZER INC-2009278786

PATIENT
  Sex: Male

DRUGS (3)
  1. DOXYCYCLINE [Concomitant]
     Indication: ANTIBIOTIC THERAPY
     Dosage: UNK
     Dates: start: 20071001, end: 20071005
  2. CHANTIX [Suspect]
     Indication: SMOKING CESSATION THERAPY
     Dosage: STARTER PACK, UNK
     Route: 048
     Dates: start: 20070501, end: 20070531
  3. CHANTIX [Suspect]
     Dosage: STARTER PACK, UNK
     Dates: start: 20070801, end: 20070831

REACTIONS (10)
  - ABNORMAL DREAMS [None]
  - DEPRESSION [None]
  - HOMICIDAL IDEATION [None]
  - PALPITATIONS [None]
  - AGITATION [None]
  - AGGRESSION [None]
  - COMPLETED SUICIDE [None]
  - MOOD SWINGS [None]
  - MYOCARDIAL INFARCTION [None]
  - ABNORMAL BEHAVIOUR [None]
